FAERS Safety Report 8909185 (Version 1)
Quarter: 2012Q4

REPORT INFORMATION
  Report Type: Spontaneous
  Country: US (occurrence: None)
  Receive Date: 20121113
  Receipt Date: 20121113
  Transmission Date: 20130627
  Serious: No
  Sender: FDA-Public Use
  Company Number: None

PATIENT
  Age: 59 Year
  Sex: Male

DRUGS (2)
  1. DILANTIN [Suspect]
     Route: 048
     Dates: start: 20110721, end: 20110801
  2. AUGMENTIN [Concomitant]

REACTIONS (4)
  - Drug-induced liver injury [None]
  - Mental status changes [None]
  - Hepatitis [None]
  - Drug reaction with eosinophilia and systemic symptoms [None]
